FAERS Safety Report 17404488 (Version 2)
Quarter: 2020Q1

REPORT INFORMATION
  Report Type: Report from Study
  Country: US (occurrence: US)
  Receive Date: 20200211
  Receipt Date: 20200320
  Transmission Date: 20200409
  Serious: Yes (Hospitalization)
  Sender: FDA-Public Use
  Company Number: US-PFIZER INC-2020051095

PATIENT
  Age: 63 Year
  Sex: Female
  Weight: 68.25 kg

DRUGS (11)
  1. CHLORTHALIDONE. [Concomitant]
     Active Substance: CHLORTHALIDONE
     Indication: HYPERTENSION
     Dosage: UNK
     Dates: start: 1990
  2. DEXAMETHASONE. [Concomitant]
     Active Substance: DEXAMETHASONE
     Indication: MUCOSAL INFLAMMATION
     Dosage: UNK
     Dates: start: 2019
  3. LISINOPRIL. [Concomitant]
     Active Substance: LISINOPRIL
     Indication: HYPERTENSION
     Dosage: UNK
     Dates: start: 1990
  4. TYLENOL [Concomitant]
     Active Substance: ACETAMINOPHEN
     Indication: MYALGIA
  5. METOPROLOL. [Concomitant]
     Active Substance: METOPROLOL
     Indication: HYPERTENSION
     Dosage: UNK
     Dates: start: 1990
  6. POTASSIUM CHLORIDE. [Concomitant]
     Active Substance: POTASSIUM CHLORIDE
     Indication: HYPERTENSION
     Dosage: UNK
     Dates: start: 1990
  7. TYLENOL [Concomitant]
     Active Substance: ACETAMINOPHEN
     Indication: BACK PAIN
     Dosage: UNK
     Dates: start: 20180806
  8. PALBOCICLIB [Suspect]
     Active Substance: PALBOCICLIB
     Indication: BREAST CANCER METASTATIC
     Dosage: 75 MG, ONCE DAILY FOR 21 DAYS ON/7 DAYS OFF FOR EACH 28 DAY CYCLE
     Route: 048
     Dates: start: 20180917, end: 20200130
  9. METFORMIN [Concomitant]
     Active Substance: METFORMIN HYDROCHLORIDE
     Indication: DIABETES MELLITUS
     Dosage: UNK
     Dates: start: 201712
  10. PF-05212384 [Suspect]
     Active Substance: GEDATOLISIB
     Indication: BREAST CANCER METASTATIC
     Dosage: 130 MG, ON DAYS 1, 8, 15, 22 OF EACH 28 DAYS CYCLE
     Route: 042
     Dates: start: 20180917, end: 20200121
  11. FULVESTRANT. [Suspect]
     Active Substance: FULVESTRANT
     Indication: BREAST CANCER METASTATIC
     Dosage: 500 MG,DAYS 1, 15 OF CYCLE 1, THEN CYCLE 2 DAY 1 THEN DAY 28 OF EACH SUBSEQUENT CYCLE(+/-3 DAYS)
     Route: 030
     Dates: start: 20180917, end: 20200121

REACTIONS (1)
  - Acute kidney injury [Recovered/Resolved]

NARRATIVE: CASE EVENT DATE: 20200131
